FAERS Safety Report 24525792 (Version 1)
Quarter: 2024Q4

REPORT INFORMATION
  Report Type: Spontaneous
  Country: EG (occurrence: EG)
  Receive Date: 20241020
  Receipt Date: 20241020
  Transmission Date: 20250114
  Serious: Yes (Other)
  Sender: AMGEN
  Company Number: EG-AMGEN-EGYSP2024204480

PATIENT

DRUGS (1)
  1. ADALIMUMAB [Suspect]
     Active Substance: ADALIMUMAB
     Indication: Uveitis
     Route: 065

REACTIONS (23)
  - Blindness [Unknown]
  - Macular oedema [Unknown]
  - Vitritis [Unknown]
  - Retinal detachment [Unknown]
  - Anterior chamber disorder [Unknown]
  - Glaucoma [Unknown]
  - Macular hole [Unknown]
  - Choroidal neovascularisation [Unknown]
  - Macular degeneration [Unknown]
  - Optic atrophy [Unknown]
  - Atrophy of globe [Unknown]
  - Retinal vein occlusion [Unknown]
  - Corneal opacity [Unknown]
  - Vitreoretinal traction syndrome [Unknown]
  - Choroiditis [Unknown]
  - Retinitis [Unknown]
  - Eye excision [Unknown]
  - Hypotony maculopathy [Unknown]
  - Cataract [Unknown]
  - Macular scar [Unknown]
  - Epiretinal membrane [Unknown]
  - Foveal degeneration [Unknown]
  - Periphlebitis [Unknown]
